FAERS Safety Report 19005492 (Version 1)
Quarter: 2021Q1

REPORT INFORMATION
  Report Type: Report from Study
  Country: US (occurrence: US)
  Receive Date: 20210313
  Receipt Date: 20210313
  Transmission Date: 20210420
  Serious: Yes (Death, Life-Threatening, Other)
  Sender: FDA-Public Use
  Company Number: NVSC2021US056587

PATIENT
  Age: 75 Year
  Sex: Male

DRUGS (3)
  1. CYCLOPHOSPHAMIDE. [Concomitant]
     Active Substance: CYCLOPHOSPHAMIDE
     Indication: CHEMOTHERAPY
     Dosage: UNK
     Route: 065
  2. FLUDARABINE [Concomitant]
     Active Substance: FLUDARABINE PHOSPHATE
     Indication: CHEMOTHERAPY
     Dosage: UNK
     Route: 065
  3. KYMRIAH [Suspect]
     Active Substance: TISAGENLECLEUCEL
     Indication: DIFFUSE LARGE B-CELL LYMPHOMA
     Dosage: UNK
     Route: 065
     Dates: start: 20200915

REACTIONS (13)
  - Ejection fraction decreased [Fatal]
  - Jaundice cholestatic [Fatal]
  - Neurotoxicity [Not Recovered/Not Resolved]
  - Organ failure [Unknown]
  - Thrombocytopenia [Not Recovered/Not Resolved]
  - Malignant neoplasm progression [Fatal]
  - Cardiac failure [Unknown]
  - Neutropenia [Not Recovered/Not Resolved]
  - Diffuse large B-cell lymphoma [Fatal]
  - Cytopenia [Not Recovered/Not Resolved]
  - Haemoglobin decreased [Unknown]
  - Acute myocardial infarction [Fatal]
  - Atrial fibrillation [Fatal]
